FAERS Safety Report 18485100 (Version 1)
Quarter: 2020Q4

REPORT INFORMATION
  Report Type: Report from Study
  Country: None (occurrence: US)
  Receive Date: 20201110
  Receipt Date: 20201110
  Transmission Date: 20210114
  Serious: Yes (Other)
  Sender: FDA-Public Use
  Company Number: US-ABBVIE-20K-163-3644923-00

PATIENT
  Sex: Female

DRUGS (2)
  1. OCUVITE [Concomitant]
     Active Substance: VITAMINS
     Indication: CATARACT
  2. IMBRUVICA [Suspect]
     Active Substance: IBRUTINIB
     Indication: CHRONIC LYMPHOCYTIC LEUKAEMIA
     Route: 048
     Dates: start: 20191231

REACTIONS (1)
  - Cardioversion [Not Recovered/Not Resolved]
